FAERS Safety Report 6617637-1 (Version None)
Quarter: 2010Q1

REPORT INFORMATION
  Report Type: 
  Country: None (occurrence: None)
  Receive Date: 20100308
  Receipt Date: 20100225
  Transmission Date: 20100710
  Serious: Yes (Hospitalization)
  Sender: FDA-Public Use
  Company Number: DE-BIOGENIDEC-2010BI002123

PATIENT
  Age: 49 Year
  Sex: Female
  Weight: 72 kg

DRUGS (14)
  1. AVONEX [Suspect]
     Indication: RELAPSING-REMITTING MULTIPLE SCLEROSIS
     Route: 030
     Dates: start: 19971001
  2. ASPIRIN [Concomitant]
     Indication: DRUG USE FOR UNKNOWN INDICATION
     Dates: start: 20090101
  3. BELOC ZOC [Concomitant]
     Indication: VENTRICULAR EXTRASYSTOLES
     Route: 048
     Dates: start: 20000101
  4. TEGRETOL [Concomitant]
     Indication: EPILEPSY
     Dates: start: 20030101, end: 20090101
  5. ZOLOFT [Concomitant]
     Indication: DEPRESSION
     Dates: start: 20030101, end: 20090101
  6. SPIRONOLACTONE [Concomitant]
     Indication: PERICARDIAL EFFUSION
     Dates: start: 20080101, end: 20090101
  7. DELIX [Concomitant]
     Indication: DRUG USE FOR UNKNOWN INDICATION
     Dates: start: 20090101
  8. PANTOZOL [Concomitant]
     Indication: DRUG USE FOR UNKNOWN INDICATION
     Dates: start: 20090101
  9. SERTRALIN [Concomitant]
     Indication: DRUG USE FOR UNKNOWN INDICATION
     Route: 048
     Dates: start: 20090101
  10. RANITIDINE HCL [Concomitant]
     Indication: GASTRITIS
     Dates: start: 20020101, end: 20090101
  11. VESDIL [Concomitant]
     Indication: HYPERTENSION
     Route: 048
     Dates: start: 20000101, end: 20030101
  12. VESDIL [Concomitant]
     Route: 048
     Dates: start: 20030101, end: 20090101
  13. TROMCARDIN [Concomitant]
     Indication: VENTRICULAR EXTRASYSTOLES
     Dates: start: 20010101, end: 20090101
  14. TIMONIL [Concomitant]
     Indication: DRUG USE FOR UNKNOWN INDICATION
     Route: 048
     Dates: start: 20090101

REACTIONS (5)
  - ARRHYTHMIA [None]
  - FEMORAL ARTERY ANEURYSM [None]
  - LIVER FUNCTION TEST ABNORMAL [None]
  - MYOCARDIAL INFARCTION [None]
  - PERICARDIAL EFFUSION [None]
